FAERS Safety Report 23668484 (Version 1)
Quarter: 2024Q1

REPORT INFORMATION
  Report Type: Spontaneous
  Country: CA (occurrence: CA)
  Receive Date: 20240325
  Receipt Date: 20240325
  Transmission Date: 20240410
  Serious: Yes (Other)
  Sender: FDA-Public Use
  Company Number: CA-AstraZeneca-2024A066324

PATIENT
  Sex: Male

DRUGS (19)
  1. ACLIDINIUM BROMIDE\FORMOTEROL FUMARATE [Suspect]
     Active Substance: ACLIDINIUM BROMIDE\FORMOTEROL FUMARATE
  2. ACLIDINIUM BROMIDE [Suspect]
     Active Substance: ACLIDINIUM BROMIDE
  3. ACLIDINIUM BROMIDE [Suspect]
     Active Substance: ACLIDINIUM BROMIDE
  4. PULMICORT TURBUHALER [Suspect]
     Active Substance: BUDESONIDE
  5. PROPYLENE GLYCOL [Suspect]
     Active Substance: PROPYLENE GLYCOL
  6. ASPIRIN [Suspect]
     Active Substance: ASPIRIN
  7. ADVAIR HFA [Suspect]
     Active Substance: FLUTICASONE PROPIONATE\SALMETEROL XINAFOATE
  8. BREO ELLIPTA [Suspect]
     Active Substance: FLUTICASONE FUROATE\VILANTEROL TRIFENATATE
  9. FLUTICASONE FUROATE [Suspect]
     Active Substance: FLUTICASONE FUROATE
  10. FUSIDATE SODIUM [Suspect]
     Active Substance: FUSIDATE SODIUM
  11. POLYETHYLENE GLYCOLS [Suspect]
     Active Substance: POLYETHYLENE GLYCOLS
  12. MEPOLIZUMAB [Suspect]
     Active Substance: MEPOLIZUMAB
  13. NUCALA [Suspect]
     Active Substance: MEPOLIZUMAB
  14. PROTOPIC [Suspect]
     Active Substance: TACROLIMUS
  15. THEOPHYLLINE [Suspect]
     Active Substance: THEOPHYLLINE
  16. PREDNISONE [Suspect]
     Active Substance: PREDNISONE
  17. ALBUTEROL [Suspect]
     Active Substance: ALBUTEROL
  18. CETIRIZINE HYDROCHLORIDE [Suspect]
     Active Substance: CETIRIZINE HYDROCHLORIDE
  19. DOMPERIDONE\PANTOPRAZOLE SODIUM [Suspect]
     Active Substance: DOMPERIDONE\PANTOPRAZOLE SODIUM

REACTIONS (6)
  - No adverse event [Unknown]
  - Cataract [Unknown]
  - Dermatitis atopic [Unknown]
  - Dyspepsia [Unknown]
  - Dysphagia [Unknown]
  - Gastroenteritis [Unknown]
